FAERS Safety Report 7048271-X (Version None)
Quarter: 2010Q4

REPORT INFORMATION
  Report Type: 
  Country: None (occurrence: None)
  Receive Date: 20101015
  Receipt Date: 20100923
  Transmission Date: 20110411
  Serious: Yes (Other)
  Sender: FDA-Public Use
  Company Number: A0886556A

PATIENT
  Sex: Female

DRUGS (1)
  1. TYKERB [Suspect]
     Indication: BREAST CANCER
     Dosage: 250MG UNKNOWN
     Route: 048

REACTIONS (2)
  - DISEASE PROGRESSION [None]
  - METASTASES TO CENTRAL NERVOUS SYSTEM [None]
